FAERS Safety Report 11415983 (Version 1)
Quarter: 2015Q3

REPORT INFORMATION
  Report Type: Spontaneous
  Country: US (occurrence: None)
  Receive Date: 20150824
  Receipt Date: 20150824
  Transmission Date: 20151125
  Serious: Yes (Other)
  Sender: FDA-Public Use
  Company Number: None

PATIENT
  Age: 43 Year
  Sex: Male
  Weight: 98.88 kg

DRUGS (2)
  1. EGRIFTA [Suspect]
     Active Substance: TESAMORELIN
     Indication: BODY FAT DISORDER
     Route: 058
     Dates: start: 20150615, end: 20150812
  2. EGRIFTA [Suspect]
     Active Substance: TESAMORELIN
     Indication: HIV INFECTION
     Route: 058
     Dates: start: 20150615, end: 20150812

REACTIONS (1)
  - Hypoaesthesia [None]

NARRATIVE: CASE EVENT DATE: 20150821
